FAERS Safety Report 21194289 (Version 2)
Quarter: 2022Q4

REPORT INFORMATION
  Report Type: Spontaneous
  Country: US (occurrence: US)
  Receive Date: 20220810
  Receipt Date: 20221005
  Transmission Date: 20230112
  Serious: No
  Sender: FDA-Public Use
  Company Number: US-PFIZER INC-202201014547

PATIENT
  Age: 13 Year
  Sex: Male
  Weight: 27.22 kg

DRUGS (1)
  1. GENOTROPIN [Suspect]
     Active Substance: SOMATROPIN
     Indication: Short stature
     Dosage: 1MG SHOT ONCE A DAY
     Dates: start: 20220718

REACTIONS (1)
  - Wrong technique in device usage process [Unknown]
